FAERS Safety Report 10885918 (Version 1)
Quarter: 2015Q1

REPORT INFORMATION
  Report Type: Spontaneous
  Country: US (occurrence: US)
  Receive Date: 20150304
  Receipt Date: 20150304
  Transmission Date: 20150721
  Serious: Yes (Death)
  Sender: FDA-Public Use
  Company Number: US-BANPHARM-20153637

PATIENT
  Age: 38 Year
  Sex: Female

DRUGS (2)
  1. ETHANOL [Suspect]
     Active Substance: ALCOHOL
  2. DIPHENHYDRAMINE UNKNOWN PRODUCT [Suspect]
     Active Substance: DIPHENHYDRAMINE

REACTIONS (2)
  - Exposure via ingestion [None]
  - Completed suicide [Fatal]
